FAERS Safety Report 8767758 (Version 2)
Quarter: 2012Q4

REPORT INFORMATION
  Report Type: 
  Country: US (occurrence: US)
  Receive Date: 20120904
  Receipt Date: 20121204
  Transmission Date: 20130627
  Serious: No
  Sender: FDA-Public Use
  Company Number: US-AMGEN-USASP2012050696

PATIENT
  Sex: Female

DRUGS (2)
  1. ENBREL [Suspect]
     Indication: RHEUMATOID ARTHRITIS
     Dosage: 25 mg, 2 times/wk
     Dates: start: 20040101
  2. REMICADE [Concomitant]
     Dosage: UNK

REACTIONS (5)
  - Therapeutic response decreased [Unknown]
  - Chills [Unknown]
  - Asthenia [Unknown]
  - Fatigue [Not Recovered/Not Resolved]
  - Anaemia [Unknown]
